FAERS Safety Report 21890687 (Version 1)
Quarter: 2023Q1

REPORT INFORMATION
  Report Type: Spontaneous
  Country: US (occurrence: US)
  Receive Date: 20230120
  Receipt Date: 20230120
  Transmission Date: 20230418
  Serious: Yes (Hospitalization)
  Sender: FDA-Public Use
  Company Number: US-MALLINCKRODT-T202300155

PATIENT
  Sex: Male

DRUGS (8)
  1. H.P. ACTHAR [Suspect]
     Active Substance: CORTICOTROPIN
     Indication: Seizure
     Dosage: 0.5 MILLILITER, BID FOR 15 DAYS
     Route: 030
     Dates: start: 202210, end: 2022
  2. H.P. ACTHAR [Suspect]
     Active Substance: CORTICOTROPIN
     Indication: Dyskinesia
     Dosage: 0.5 MILLILITER, QD FOR 7 DAYS
     Route: 030
     Dates: start: 2022, end: 2022
  3. H.P. ACTHAR [Suspect]
     Active Substance: CORTICOTROPIN
     Dosage: 0.25 MILLILITER, QD FOR 7 DAYS
     Route: 030
     Dates: start: 2022, end: 2022
  4. H.P. ACTHAR [Suspect]
     Active Substance: CORTICOTROPIN
     Dosage: 0.13 MILLILITER, QD FOR 7 DAYS
     Route: 065
     Dates: start: 2022, end: 2022
  5. H.P. ACTHAR [Suspect]
     Active Substance: CORTICOTROPIN
     Dosage: 0.06 MILLILITER, QD FOR 7 DAYS
     Route: 030
     Dates: start: 2022
  6. VIGABATRIN [Suspect]
     Active Substance: VIGABATRIN
     Indication: Seizure
     Dosage: 15 MG TWICE DAILY FOR 7 DAYS
     Route: 065
  7. VIGABATRIN [Suspect]
     Active Substance: VIGABATRIN
     Indication: Dyskinesia
     Dosage: 250 MG TWICE DAILY FOR 7 DAYS
     Route: 065
  8. VIGABATRIN [Suspect]
     Active Substance: VIGABATRIN
     Dosage: 500 MG TWICE DAILY
     Route: 065

REACTIONS (2)
  - Infantile spasms [Unknown]
  - Fatigue [Unknown]
